FAERS Safety Report 7951898-1 (Version None)
Quarter: 2011Q4

REPORT INFORMATION
  Report Type: 
  Country: None (occurrence: None)
  Receive Date: 20111201
  Receipt Date: 20111201
  Transmission Date: 20120403
  Serious: No
  Sender: FDA-Public Use
  Company Number: None

PATIENT
  Age: 17 Year
  Sex: Female
  Weight: 47.627 kg

DRUGS (1)
  1. DOXYCYCLINE HYCLATE [Suspect]
     Indication: ACNE
     Dosage: 1 CAPSULE
     Route: 048
     Dates: start: 20110925, end: 20111130

REACTIONS (6)
  - EPILEPSY [None]
  - PAIN [None]
  - METABOLIC DISORDER [None]
  - CONTUSION [None]
  - TOXIC SHOCK SYNDROME [None]
  - HORMONE LEVEL ABNORMAL [None]
